FAERS Safety Report 18552380 (Version 1)
Quarter: 2020Q4

REPORT INFORMATION
  Report Type: Spontaneous
  Country: FR (occurrence: FR)
  Receive Date: 20201127
  Receipt Date: 20201127
  Transmission Date: 20210114
  Serious: Yes (Hospitalization, Other)
  Sender: FDA-Public Use
  Company Number: FR-AUROBINDO-AUR-APL-2020-058394

PATIENT
  Age: 44 Year
  Sex: Female

DRUGS (4)
  1. PARACETAMOL TABLET [Suspect]
     Active Substance: ACETAMINOPHEN
     Indication: PRODUCT USED FOR UNKNOWN INDICATION
     Dosage: UNK, 3 TIMES A DAY, (2 TABLETS (PRESCRIBED)
     Route: 048
  2. ZOPICLONE TABLET [Suspect]
     Active Substance: ZOPICLONE
     Indication: PRODUCT USED FOR UNKNOWN INDICATION
     Dosage: UNK, ONCE A DAY, (1 TABLET (PRESCRIBED)
     Route: 048
  3. EPITOMAX [Suspect]
     Active Substance: TOPIRAMATE
     Indication: PRODUCT USED FOR UNKNOWN INDICATION
     Dosage: UNK, (1 TABLET PER DAY (PRESCRIBED))
     Route: 048
  4. SERESTA [Suspect]
     Active Substance: OXAZEPAM
     Indication: PRODUCT USED FOR UNKNOWN INDICATION
     Dosage: UNK, (4 TO 5 TIMES A DAY)
     Route: 048

REACTIONS (1)
  - Drug dependence [Not Recovered/Not Resolved]
